FAERS Safety Report 8261311-5 (Version None)
Quarter: 2012Q2

REPORT INFORMATION
  Report Type: 
  Country: None (occurrence: None)
  Receive Date: 20120402
  Receipt Date: 20120319
  Transmission Date: 20120825
  Serious: Yes (Hospitalization, Other)
  Sender: FDA-Public Use
  Company Number: DSU-2012-02163

PATIENT
  Sex: Female

DRUGS (5)
  1. SIMVASTATIN [Suspect]
     Indication: HYPERLIPIDAEMIA
     Dosage: 20 MG (20 MG,QD),PER ORAL
     Route: 048
  2. ASPIRIN [Concomitant]
  3. METFORMIN HCL [Concomitant]
  4. AZOR [Suspect]
     Indication: HYPERTENSION
     Dosage: 10/40MG (QD),PER ORAL ; 5/MG (QD),PER ORAL
     Route: 048
     Dates: start: 20120101
  5. AZOR [Suspect]
     Indication: HYPERTENSION
     Dosage: 10/40MG (QD),PER ORAL ; 5/MG (QD),PER ORAL
     Route: 048
     Dates: start: 20110101, end: 20120101

REACTIONS (5)
  - FEELING ABNORMAL [None]
  - BALANCE DISORDER [None]
  - MUSCULAR WEAKNESS [None]
  - BLOOD MAGNESIUM DECREASED [None]
  - DRUG INTERACTION [None]
